FAERS Safety Report 5534359-9 (Version None)
Quarter: 2007Q4

REPORT INFORMATION
  Report Type: 
  Country: None (occurrence: None)
  Receive Date: 20071130
  Receipt Date: 20071113
  Transmission Date: 20080405
  Serious: Yes (Hospitalization)
  Sender: FDA-Public Use
  Company Number: ADE2007-0049

PATIENT
  Age: 39 Year
  Sex: Female

DRUGS (6)
  1. CIPROFLOXACIN HCL [Suspect]
     Dosage: 500MG BID PO
     Route: 048
     Dates: end: 20070921
  2. TIGECYCLINE [Suspect]
     Indication: OSTEOMYELITIS
     Dosage: 50 MG IV
     Route: 042
     Dates: start: 20070910
  3. CASPOFUNGIN ACETATE [Concomitant]
  4. LORATADINE [Concomitant]
  5. PARACETAMOL [Concomitant]
  6. RANITIDINE HCL [Concomitant]

REACTIONS (2)
  - MOUTH ULCERATION [None]
  - TONGUE ULCERATION [None]
